FAERS Safety Report 6246100-5 (Version None)
Quarter: 2009Q2

REPORT INFORMATION
  Report Type: 
  Country: None (occurrence: None)
  Receive Date: 20090626
  Receipt Date: 20090221
  Transmission Date: 20091009
  Serious: No
  Sender: FDA-Public Use
  Company Number: A0770746A

PATIENT
  Sex: Female

DRUGS (1)
  1. SUMATRIPTAN SUCCINATE [Suspect]
     Indication: MIGRAINE
     Dates: start: 20090220

REACTIONS (3)
  - DRUG INEFFECTIVE [None]
  - PAIN [None]
  - VOMITING [None]
